FAERS Safety Report 5786621-2 (Version None)
Quarter: 2008Q2

REPORT INFORMATION
  Report Type: 
  Country: None (occurrence: None)
  Receive Date: 20080624
  Receipt Date: 20080610
  Transmission Date: 20081010
  Serious: Yes (Other)
  Sender: FDA-Public Use
  Company Number: GR-GENENTECH-263043

PATIENT
  Sex: Female

DRUGS (2)
  1. AVASTIN [Suspect]
     Indication: MACULOPATHY
     Dates: start: 20060601
  2. TENORMIN [Concomitant]
     Indication: HYPERTENSION

REACTIONS (1)
  - CHEST DISCOMFORT [None]
